FAERS Safety Report 12164760 (Version 1)
Quarter: 2016Q1

REPORT INFORMATION
  Report Type: Spontaneous
  Country: US (occurrence: US)
  Receive Date: 20160309
  Receipt Date: 20160309
  Transmission Date: 20160526
  Serious: No
  Sender: FDA-Public Use
  Company Number: US-PFIZER INC-2016122323

PATIENT

DRUGS (4)
  1. ASPIRIN. [Suspect]
     Active Substance: ASPIRIN
     Dosage: UNK
  2. ASCORBIC ACID. [Suspect]
     Active Substance: ASCORBIC ACID
     Dosage: UNK
  3. CALCIUM [Suspect]
     Active Substance: CALCIUM
     Dosage: UNK
  4. PROTONIX [Suspect]
     Active Substance: PANTOPRAZOLE SODIUM
     Dosage: UNK

REACTIONS (1)
  - Drug hypersensitivity [Unknown]
